FAERS Safety Report 5975032-2 (Version None)
Quarter: 2008Q4

REPORT INFORMATION
  Report Type: 
  Country: None (occurrence: None)
  Receive Date: 20081202
  Receipt Date: 20081117
  Transmission Date: 20090506
  Serious: Yes (Other)
  Sender: FDA-Public Use
  Company Number: PT-CELGENEUS-130-CCAZA-08110986

PATIENT

DRUGS (1)
  1. AZACITIDINE [Suspect]
     Indication: MYELODYSPLASTIC SYNDROME
     Route: 058

REACTIONS (4)
  - GASTROINTESTINAL TOXICITY [None]
  - HAEMATOTOXICITY [None]
  - PULMONARY TOXICITY [None]
  - SKIN TOXICITY [None]
